FAERS Safety Report 10541870 (Version 1)
Quarter: 2014Q4

REPORT INFORMATION
  Report Type: Spontaneous
  Country: US (occurrence: None)
  Receive Date: 20141010
  Receipt Date: 20141010
  Transmission Date: 20150529
  Serious: No
  Sender: FDA-Public Use
  Company Number: 163-POMAL-14063844

PATIENT
  Age: 58 Year
  Sex: Female
  Weight: 113.4 kg

DRUGS (6)
  1. POMALYST [Suspect]
     Active Substance: POMALIDOMIDE
     Indication: PLASMA CELL MYELOMA
     Route: 048
     Dates: start: 201309
  2. ALLOPURINOL. [Concomitant]
     Active Substance: ALLOPURINOL
  3. DEXAMETHASONE. [Concomitant]
     Active Substance: DEXAMETHASONE
  4. VENLAFAXINE [Concomitant]
     Active Substance: VENLAFAXINE HYDROCHLORIDE
  5. BISOPROLOL-HYDROCHLOROTHIAZIDE(BISELECT) [Concomitant]
  6. ALPRAZOLAM. [Concomitant]
     Active Substance: ALPRAZOLAM

REACTIONS (2)
  - Upper respiratory tract infection [None]
  - Eyelid margin crusting [None]

NARRATIVE: CASE EVENT DATE: 20140614
